FAERS Safety Report 6579839-2 (Version None)
Quarter: 2010Q1

REPORT INFORMATION
  Report Type: 
  Country: None (occurrence: None)
  Receive Date: 20100209
  Receipt Date: 20100209
  Transmission Date: 20100710
  Serious: Yes (Other)
  Sender: FDA-Public Use
  Company Number: None

PATIENT
  Sex: Female
  Weight: 70.3075 kg

DRUGS (13)
  1. HUMIRA [Suspect]
     Indication: RHEUMATOID ARTHRITIS
     Dosage: 40 MG EVERY OTHER WEEK SQ
     Route: 058
     Dates: start: 20080501, end: 20100204
  2. PLAQUENIL [Concomitant]
  3. METHOTREXATE [Concomitant]
  4. ULTRAM [Concomitant]
  5. SIMVASTATIN [Concomitant]
  6. ACCUPRIL [Concomitant]
  7. TRAZODONE HCL [Concomitant]
  8. BISOPRIL [Concomitant]
  9. FOLIC ACID [Concomitant]
  10. FLONASE [Concomitant]
  11. LIBRAX [Concomitant]
  12. KEFLEX [Concomitant]
  13. PREVACID [Concomitant]

REACTIONS (2)
  - REFUSAL OF TREATMENT BY PATIENT [None]
  - RENAL FAILURE CHRONIC [None]
